FAERS Safety Report 4962236-0 (Version None)
Quarter: 2006Q2

REPORT INFORMATION
  Report Type: 
  Country: None (occurrence: None)
  Receive Date: 20060403
  Receipt Date: 20060403
  Transmission Date: 20061013
  Serious: Yes (Other)
  Sender: FDA-Public Use
  Company Number: None

PATIENT
  Age: 32 Month
  Sex: Female
  Weight: 12.2471 kg

DRUGS (1)
  1. AMOXICILLIN [Suspect]
     Indication: OTITIS MEDIA
     Dosage: 250 MG BID  X 10 D
     Dates: start: 20060304

REACTIONS (3)
  - PRURITUS [None]
  - RASH [None]
  - URTICARIA [None]
